FAERS Safety Report 9625510 (Version 1)
Quarter: 2013Q4

REPORT INFORMATION
  Report Type: Spontaneous
  Country: US (occurrence: US)
  Receive Date: 20131016
  Receipt Date: 20131016
  Transmission Date: 20140711
  Serious: No
  Sender: FDA-Public Use
  Company Number: US-009507513-1310USA006426

PATIENT
  Age: 74 Year
  Sex: Male

DRUGS (3)
  1. REMERON [Suspect]
     Indication: SLEEP DISORDER
     Dosage: 15 MG, QD
     Route: 048
     Dates: start: 20131008
  2. DOXYCYCLINE HYCLATE [Suspect]
     Dosage: 100 MG, UNK
     Dates: start: 20131008
  3. CEPHALEXIN [Suspect]
     Dosage: 500 MG, UNK
     Dates: start: 20131008

REACTIONS (2)
  - Ageusia [Not Recovered/Not Resolved]
  - Off label use [Unknown]
